FAERS Safety Report 6212989-9 (Version None)
Quarter: 2009Q2

REPORT INFORMATION
  Report Type: 
  Country: None (occurrence: None)
  Receive Date: 20090602
  Receipt Date: 20090602
  Transmission Date: 20091009
  Serious: No
  Sender: FDA-Public Use
  Company Number: None

PATIENT

DRUGS (2)
  1. ZICAM CHEWABLE TABLETS MATRIXX INITATIVES [Suspect]
     Indication: HOMEOPATHY
     Dates: start: 20090409, end: 20090409
  2. ZICAM CHEWABLE TABLETS MATRIXX INITATIVES [Suspect]
     Indication: NASOPHARYNGITIS
     Dates: start: 20090409, end: 20090409

REACTIONS (2)
  - TABLET ISSUE [None]
  - TOOTHACHE [None]
